FAERS Safety Report 25297580 (Version 2)
Quarter: 2025Q3

REPORT INFORMATION
  Report Type: Spontaneous
  Country: SG (occurrence: SG)
  Receive Date: 20250511
  Receipt Date: 20250703
  Transmission Date: 20251020
  Serious: Yes (Other)
  Sender: AMGEN
  Company Number: SG-AMGEN-SGPSP2025089095

PATIENT
  Age: 76 Year
  Sex: Male

DRUGS (1)
  1. ADALIMUMAB [Suspect]
     Active Substance: ADALIMUMAB
     Indication: Psoriasis
     Dosage: 40 MILLIGRAM, Q2WK, CYCLICAL
     Route: 058
     Dates: start: 20230501, end: 20230930

REACTIONS (3)
  - Immune reconstitution inflammatory syndrome associated tuberculosis [Unknown]
  - Bronchial ulceration [Unknown]
  - COVID-19 [Unknown]

NARRATIVE: CASE EVENT DATE: 20231001
